FAERS Safety Report 8992652 (Version 2)
Quarter: 2013Q1

REPORT INFORMATION
  Report Type: Spontaneous
  Country: BR (occurrence: BR)
  Receive Date: 20130101
  Receipt Date: 20130326
  Transmission Date: 20140127
  Serious: Yes (Hospitalization, Other)
  Sender: FDA-Public Use
  Company Number: PHHY2012BR119512

PATIENT
  Sex: Female
  Weight: 47 kg

DRUGS (4)
  1. EXJADE [Suspect]
     Indication: IRON OVERLOAD
     Dosage: UNK UKN, UNK
     Dates: start: 2006
  2. EXJADE [Suspect]
     Dosage: 500 MG, 2 TABLETS
     Route: 048
     Dates: start: 20120110, end: 20120814
  3. EXJADE [Suspect]
     Dosage: UNK UKN, UNK
     Route: 048
     Dates: end: 20121128
  4. FOLIC ACID [Concomitant]
     Indication: THALASSAEMIA
     Dosage: 5 MG, 1 TABLET
     Route: 048

REACTIONS (10)
  - Erysipelas [Recovering/Resolving]
  - Burning sensation [Recovering/Resolving]
  - Blister [Recovering/Resolving]
  - Local swelling [Recovering/Resolving]
  - Erythema [Recovering/Resolving]
  - Pruritus [Recovering/Resolving]
  - Pyrexia [Recovering/Resolving]
  - Gait disturbance [Recovering/Resolving]
  - Decreased appetite [Not Recovered/Not Resolved]
  - Weight decreased [Not Recovered/Not Resolved]
